FAERS Safety Report 10985393 (Version 1)
Quarter: 2015Q2

REPORT INFORMATION
  Report Type: Spontaneous
  Country: US (occurrence: US)
  Receive Date: 20150404
  Receipt Date: 20150404
  Transmission Date: 20150821
  Serious: No
  Sender: FDA-Public Use
  Company Number: US-SA-2014SA055135

PATIENT
  Age: 29 Year
  Sex: Female

DRUGS (1)
  1. ALLEGRA-D [Suspect]
     Active Substance: FEXOFENADINE\PSEUDOEPHEDRINE
     Indication: HYPERSENSITIVITY
     Dosage: 180/240 MG
     Route: 048
     Dates: start: 20140418, end: 20140422

REACTIONS (2)
  - Adverse reaction [Unknown]
  - Drug ineffective [Unknown]
